FAERS Safety Report 21416004 (Version 2)
Quarter: 2023Q1

REPORT INFORMATION
  Report Type: Report from Study
  Country: GB (occurrence: GB)
  Receive Date: 20221006
  Receipt Date: 20230104
  Transmission Date: 20230418
  Serious: Yes (Other)
  Sender: FDA-Public Use
  Company Number: GB-SAMSUNG BIOEPIS-SB-2022-10412

PATIENT
  Age: 79 Year
  Sex: Female

DRUGS (1)
  1. IMRALDI [Suspect]
     Active Substance: ADALIMUMAB
     Indication: Ankylosing spondylitis
     Dosage: STRENGTH: 40 MG/0.8 ML;
     Route: 058
     Dates: start: 20220330

REACTIONS (7)
  - Cystitis [Recovered/Resolved]
  - Ankylosing spondylitis [Unknown]
  - Immunosuppression [Unknown]
  - Iritis [Recovered/Resolved]
  - COVID-19 [Unknown]
  - Uterine prolapse [Unknown]
  - Musculoskeletal chest pain [Recovered/Resolved]
